FAERS Safety Report 8785392 (Version 2)
Quarter: 2012Q4

REPORT INFORMATION
  Report Type: 
  Country: US (occurrence: US)
  Receive Date: 20120914
  Receipt Date: 20121026
  Transmission Date: 20130627
  Serious: No
  Sender: FDA-Public Use
  Company Number: US-PFIZER INC-2012222821

PATIENT
  Age: 66 Year
  Sex: Female

DRUGS (2)
  1. SUTENT [Suspect]
     Indication: METASTATIC RENAL CELL CARCINOMA
     Dosage: 50 mg/day
     Route: 048
     Dates: start: 20120712, end: 20120824
  2. OXYCODONE [Concomitant]
     Dosage: 10/325

REACTIONS (4)
  - Oral pain [Recovered/Resolved]
  - Amnesia [Recovered/Resolved]
  - Disorientation [Unknown]
  - Fatigue [Recovered/Resolved]
